FAERS Safety Report 8001944-4 (Version None)
Quarter: 2011Q4

REPORT INFORMATION
  Report Type: 
  Country: None (occurrence: None)
  Receive Date: 20111222
  Receipt Date: 20111213
  Transmission Date: 20120403
  Serious: Yes (Hospitalization)
  Sender: FDA-Public Use
  Company Number: DE-MILLENNIUM PHARMACEUTICALS, INC.-2011-05985

PATIENT

DRUGS (12)
  1. FLUCONAZOLE [Concomitant]
  2. CYCLOPHOSPHAMIDE [Suspect]
     Indication: MULTIPLE MYELOMA
     Dosage: 500 MG/M2, UNK
     Route: 042
     Dates: start: 20111116, end: 20111116
  3. FENTANYL [Concomitant]
     Dosage: 32 UG, UNK
  4. TELMISARTAN [Concomitant]
     Route: 065
  5. VALACICLOVIR [Concomitant]
     Route: 065
  6. VELCADE [Suspect]
     Indication: MULTIPLE MYELOMA
     Dosage: 1.3 MG/M2, CYCLIC
     Route: 042
     Dates: start: 20111116, end: 20111116
  7. ESOMEPRAZOLE MAGNESIUM [Concomitant]
     Dosage: UNK
     Route: 065
  8. PREGABALIN [Concomitant]
     Route: 065
  9. DEXAMETHASONE [Suspect]
     Indication: MULTIPLE MYELOMA
     Dosage: 20 MG, UNK
     Route: 048
     Dates: start: 20111116, end: 20111122
  10. ACETYLSALICYLIC ACID SRT [Concomitant]
     Route: 065
  11. COTRIM [Concomitant]
     Route: 065
  12. HYDROCHLOROTHIAZIDE [Concomitant]
     Dosage: 12.5 UNK, UNK
     Route: 065

REACTIONS (1)
  - DEHYDRATION [None]
